FAERS Safety Report 7145674-X (Version None)
Quarter: 2010Q4

REPORT INFORMATION
  Report Type: 
  Country: None (occurrence: None)
  Receive Date: 20101208
  Receipt Date: 20101022
  Transmission Date: 20110411
  Serious: No
  Sender: FDA-Public Use
  Company Number: US-ABBOTT-10P-163-0680547-00

PATIENT
  Age: 43 Year
  Sex: Female

DRUGS (15)
  1. ERYTHROMYCIN ESTOLATE [Suspect]
     Indication: PRODUCT USED FOR UNKNOWN INDICATION
  2. NEURONTIN [Concomitant]
     Indication: PAIN
  3. ZANAFLEX [Concomitant]
     Indication: BACK PAIN
  4. PERCOCET [Concomitant]
     Indication: PAIN
     Dosage: 10/325MG
  5. PRILOSEC [Concomitant]
     Indication: PRODUCT USED FOR UNKNOWN INDICATION
  6. RESTORIL [Concomitant]
     Indication: INSOMNIA
  7. KLONOPIN [Concomitant]
     Indication: ANXIETY
  8. VISTARIL [Concomitant]
     Indication: ANXIETY
  9. ENTOCORT EC [Concomitant]
     Indication: CROHN'S DISEASE
     Dosage: WEANING OFF FOR CROHN'S DISEASE
  10. ARMOR THYROID [Concomitant]
     Indication: PRODUCT USED FOR UNKNOWN INDICATION
     Dosage: DOESN'T TAKE BECAUSE OF STOMACH PROBLEMS RIGHT NOW
  11. PROZAC [Concomitant]
     Indication: DEPRESSION
     Dosage: HASN'T TAKEN SINCE STOMACH PROBLEMS STARTED
  12. LOVESIN [Concomitant]
     Indication: ABDOMINAL PAIN
     Dosage: FOUR TIMES DAILY AS NEEDED
  13. TRAMADOL [Concomitant]
     Indication: PAIN
  14. COMPAZINE [Concomitant]
     Indication: NAUSEA
  15. COMPAZINE [Concomitant]
     Indication: VOMITING

REACTIONS (2)
  - GASTROINTESTINAL DISORDER [None]
  - RASH [None]
